FAERS Safety Report 6003762-5 (Version None)
Quarter: 2008Q4

REPORT INFORMATION
  Report Type: 
  Country: None (occurrence: None)
  Receive Date: 20081216
  Receipt Date: 20081204
  Transmission Date: 20090506
  Serious: Yes (Other)
  Sender: FDA-Public Use
  Company Number: PHEH2008US10340

PATIENT
  Sex: Female
  Weight: 38.549 kg

DRUGS (3)
  1. RECLAST [Suspect]
     Dosage: UNK ONCE YEARLY
     Dates: start: 20081110, end: 20081110
  2. PLAVIX [Concomitant]
  3. VITAMIN D [Concomitant]
     Dosage: MEGA DOSE, ONCE A WEEK

REACTIONS (19)
  - ABNORMAL DREAMS [None]
  - ANOREXIA [None]
  - ARTHRALGIA [None]
  - ARTHRITIS [None]
  - ASTHENIA [None]
  - BACK PAIN [None]
  - CHILLS [None]
  - DYSPNOEA [None]
  - FEELING ABNORMAL [None]
  - GAIT DISTURBANCE [None]
  - HEADACHE [None]
  - HEART RATE INCREASED [None]
  - HYPOTENSION [None]
  - MALAISE [None]
  - MUSCULOSKELETAL PAIN [None]
  - NAUSEA [None]
  - PAIN [None]
  - PYREXIA [None]
  - SLEEP DISORDER [None]
